FAERS Safety Report 8876921 (Version 1)
Quarter: 2012Q4

REPORT INFORMATION
  Report Type: Spontaneous
  Country: US (occurrence: None)
  Receive Date: 20121024
  Receipt Date: 20121024
  Transmission Date: 20130627
  Serious: Yes (Other)
  Sender: FDA-Public Use
  Company Number: USA/USA/12/0026243

PATIENT
  Age: 33 Year
  Sex: Female

DRUGS (10)
  1. VENLAFAXINE HYDROCHLORIDE [Suspect]
  2. LAMOTRIGINE [Suspect]
  3. LAMOTRIGINE [Suspect]
  4. SERTRALINE (SERTRALINE) (SERTRALINE) [Suspect]
  5. TRAMADOL (TRAMADOL) [Suspect]
  6. TRAMADOL (TRAMADOL) [Suspect]
  7. TRAMADOL (TRAMADOL) [Suspect]
  8. TRAMADOL (TRAMADOL) [Suspect]
  9. OXCARBAZEPINE [Suspect]
  10. PHENYTOIN (PHENYTOIN) [Concomitant]

REACTIONS (9)
  - Drug interaction [None]
  - Convulsion [None]
  - Depression [None]
  - Insomnia [None]
  - No therapeutic response [None]
  - Impaired work ability [None]
  - Impaired self-care [None]
  - Incorrect dose administered [None]
  - Pain [None]
